FAERS Safety Report 9224276 (Version 1)
Quarter: 2012Q4

REPORT INFORMATION
  Report Type: Spontaneous
  Country: US (occurrence: None)
  Receive Date: 20120910
  Receipt Date: 20120910
  Transmission Date: 20130627
  Serious: No
  Sender: FDA-Public Use
  Company Number: 1207USA013105

PATIENT
  Age: 64 Year
  Sex: Male

DRUGS (2)
  1. ZIOPTAN [Suspect]
     Indication: GLAUCOMA
     Dosage: UNK, Ophthalmic
     Dates: start: 20120718
  2. COUMADIN (WARFARIN SODIUM) [Concomitant]

REACTIONS (4)
  - Flatulence [None]
  - Constipation [None]
  - Dyspepsia [None]
  - Abnormal faeces [None]
